FAERS Safety Report 9405807 (Version 2)
Quarter: 2013Q3

REPORT INFORMATION
  Report Type: Spontaneous
  Country: US (occurrence: US)
  Receive Date: 20130717
  Receipt Date: 20130925
  Transmission Date: 20140515
  Serious: Yes (Life-Threatening, Hospitalization)
  Sender: FDA-Public Use
  Company Number: US-MERCK-1307USA006345

PATIENT
  Age: 34 Year
  Sex: Male
  Weight: 108.84 kg

DRUGS (3)
  1. SAPHRIS [Suspect]
     Dosage: 5 MG, BID
     Route: 060
     Dates: start: 20101123, end: 201111
  2. SAPHRIS [Suspect]
     Dosage: 10 MG, BID
     Dates: start: 201111, end: 2012
  3. INVEGA [Suspect]

REACTIONS (5)
  - Diabetic hyperosmolar coma [Recovered/Resolved]
  - Memory impairment [Not Recovered/Not Resolved]
  - Diabetes mellitus [Unknown]
  - Increased appetite [Not Recovered/Not Resolved]
  - Hyperglycaemia [Not Recovered/Not Resolved]
